FAERS Safety Report 8057413-9 (Version None)
Quarter: 2012Q1

REPORT INFORMATION
  Report Type: 
  Country: None (occurrence: None)
  Receive Date: 20120119
  Receipt Date: 20120113
  Transmission Date: 20120608
  Serious: Yes (Hospitalization, Other)
  Sender: FDA-Public Use
  Company Number: US-ROCHE-791993

PATIENT
  Sex: Male
  Weight: 113.5 kg

DRUGS (2)
  1. ACCUTANE [Suspect]
     Indication: ACNE
     Route: 065
     Dates: start: 19921101, end: 19930501
  2. XANAX [Concomitant]
     Indication: PANIC ATTACK

REACTIONS (6)
  - ANAL FISSURE [None]
  - DEPRESSION [None]
  - HAEMORRHOIDS [None]
  - CROHN'S DISEASE [None]
  - INFLAMMATORY BOWEL DISEASE [None]
  - COLITIS ULCERATIVE [None]
